FAERS Safety Report 5531075-4 (Version None)
Quarter: 2007Q4

REPORT INFORMATION
  Report Type: 
  Country: None (occurrence: None)
  Receive Date: 20071130
  Receipt Date: 20071106
  Transmission Date: 20080405
  Serious: No
  Sender: FDA-Public Use
  Company Number: US-BOEHRINGER INGELHEIM PHARMACEUTICALS, INC.-2007-BP-23987BP

PATIENT
  Sex: Male

DRUGS (5)
  1. FLOMAX [Suspect]
     Indication: BENIGN PROSTATIC HYPERPLASIA
     Route: 048
     Dates: start: 20070501, end: 20070601
  2. TOPROL-XL [Concomitant]
     Indication: CARDIAC OPERATION
  3. FISH OIL [Concomitant]
  4. FOLIC ACID [Concomitant]
  5. ASCORBIC ACID [Concomitant]

REACTIONS (3)
  - DYSGEUSIA [None]
  - PAROSMIA [None]
  - SKIN ODOUR ABNORMAL [None]
